FAERS Safety Report 13535879 (Version 2)
Quarter: 2017Q3

REPORT INFORMATION
  Report Type: Spontaneous
  Country: US (occurrence: US)
  Receive Date: 20170511
  Receipt Date: 20170725
  Transmission Date: 20171127
  Serious: Yes (Other)
  Sender: FDA-Public Use
  Company Number: US-D.O.R.C. INTERNATIONAL, B.V.-2020589

PATIENT
  Age: 59 Year
  Sex: Female

DRUGS (2)
  1. VISIONBLUE [Suspect]
     Active Substance: TRYPAN BLUE
     Indication: CATARACT OPERATION
     Route: 031
     Dates: start: 20170502, end: 20170502
  2. KENALOG [Concomitant]
     Active Substance: TRIAMCINOLONE ACETONIDE
     Dates: start: 20170502, end: 20170502

REACTIONS (1)
  - Corneal oedema [Recovered/Resolved]

NARRATIVE: CASE EVENT DATE: 20170502
